FAERS Safety Report 9778373 (Version 2)
Quarter: 2013Q4

REPORT INFORMATION
  Report Type: Report from Study
  Country: JP (occurrence: JP)
  Receive Date: 20131223
  Receipt Date: 20131230
  Transmission Date: 20140711
  Serious: Yes (Hospitalization)
  Sender: FDA-Public Use
  Company Number: JP-UCBSA-106609

PATIENT
  Age: 61 Year
  Sex: Female

DRUGS (5)
  1. CIMZIA [Suspect]
     Indication: RHEUMATOID ARTHRITIS
     Dosage: BIWEEKLY
     Route: 058
     Dates: start: 20131101, end: 20131203
  2. METHOTREXATE [Suspect]
     Route: 048
  3. HYPEN [Concomitant]
     Dosage: 400MG
     Route: 048
  4. PROGRAFT [Concomitant]
     Dosage: DAILY DOSE: 1.5MG
     Route: 048
     Dates: start: 20131101, end: 2013
  5. PREDNISOLONE [Concomitant]

REACTIONS (1)
  - Lymphoma [Not Recovered/Not Resolved]
